FAERS Safety Report 18819914 (Version 1)
Quarter: 2021Q1

REPORT INFORMATION
  Report Type: Spontaneous
  Country: BR (occurrence: BR)
  Receive Date: 20210202
  Receipt Date: 20210202
  Transmission Date: 20210419
  Serious: Yes (Other)
  Sender: FDA-Public Use
  Company Number: BR-AUROBINDO-AUR-APL-2010-02623

PATIENT
  Age: 52 Year
  Sex: Female

DRUGS (3)
  1. VANCOMYCIN [Suspect]
     Active Substance: VANCOMYCIN
     Indication: PERITONITIS BACTERIAL
     Dosage: 1 GRAM, EVERY 5 DAYS
     Route: 042
  2. CEFTAZIDIME FOR INJECTION 1G [Suspect]
     Active Substance: CEFTAZIDIME
     Indication: PERITONITIS BACTERIAL
     Dosage: 1 GRAM, ONCE A DAY
     Route: 033
  3. TOBRAMYCIN. [Suspect]
     Active Substance: TOBRAMYCIN
     Indication: PERITONITIS BACTERIAL
     Dosage: 75 MILLIGRAM, ONCE A DAY
     Route: 033

REACTIONS (3)
  - Drug ineffective [Unknown]
  - Leukopenia [Recovered/Resolved]
  - Anaemia [Unknown]
